FAERS Safety Report 24734689 (Version 1)
Quarter: 2024Q4

REPORT INFORMATION
  Report Type: Spontaneous
  Country: US (occurrence: US)
  Receive Date: 20241214
  Receipt Date: 20241214
  Transmission Date: 20250115
  Serious: Yes (Hospitalization, Other)
  Sender: CELLTRION
  Company Number: US-CELLTRION INC.-2024US031468

PATIENT

DRUGS (1)
  1. ZYMFENTRA [Suspect]
     Active Substance: INFLIXIMAB-DYYB
     Indication: Colitis ulcerative
     Dosage: 120MG, ONCE EVERY TWO WEEKS
     Route: 058
     Dates: start: 20240810

REACTIONS (6)
  - Hypersensitivity [Unknown]
  - Oropharyngeal discomfort [Unknown]
  - Urticaria [Unknown]
  - Illness [Unknown]
  - Lip swelling [Unknown]
  - Intentional dose omission [Unknown]

NARRATIVE: CASE EVENT DATE: 20240914
